FAERS Safety Report 9670710 (Version 3)
Quarter: 2014Q1

REPORT INFORMATION
  Report Type: Spontaneous
  Country: IT (occurrence: IT)
  Receive Date: 20131106
  Receipt Date: 20140128
  Transmission Date: 20141002
  Serious: Yes (Other)
  Sender: FDA-Public Use
  Company Number: IT-RANBAXY-2013RR-74863

PATIENT
  Age: 62 Year
  Sex: Female

DRUGS (3)
  1. SIMVASTATIN [Suspect]
     Indication: HYPERCHOLESTEROLAEMIA
     Dosage: 20 MG DAILY
     Route: 048
     Dates: start: 20130928, end: 20131006
  2. PLAUNAZIDE [Concomitant]
     Indication: HYPERTENSION
     Dosage: 32.5 MG
     Route: 065
  3. BISOPROLOL HEMIFUMARATE [Concomitant]
     Indication: HYPERTENSION
     Dosage: 1.25 MG
     Route: 048

REACTIONS (5)
  - Paraesthesia [Recovering/Resolving]
  - Palpitations [Recovering/Resolving]
  - Syncope [Recovering/Resolving]
  - Rhabdomyolysis [Recovering/Resolving]
  - Vision blurred [Recovering/Resolving]
